FAERS Safety Report 8073178-9 (Version None)
Quarter: 2012Q1

REPORT INFORMATION
  Report Type: 
  Country: None (occurrence: None)
  Receive Date: 20120123
  Receipt Date: 20120123
  Transmission Date: 20120608
  Serious: Yes (Life-Threatening)
  Sender: FDA-Public Use
  Company Number: None

PATIENT
  Age: 59 Year
  Sex: Female
  Weight: 55 kg

DRUGS (2)
  1. AMOXICILLIN AND CLAVULANATE POTASSIUM [Suspect]
     Dosage: MG PO
     Route: 048
     Dates: start: 20111112, end: 20111118
  2. AZITHROMYCIN [Suspect]
     Indication: PNEUMONIA
     Dosage: MG PO
     Route: 048
     Dates: start: 20111112, end: 20111113

REACTIONS (1)
  - ANGIOEDEMA [None]
